FAERS Safety Report 19088913 (Version 2)
Quarter: 2021Q2

REPORT INFORMATION
  Report Type: Report from Study
  Country: None (occurrence: US)
  Receive Date: 20210403
  Receipt Date: 20210607
  Transmission Date: 20210717
  Serious: Yes (Hospitalization, Other)
  Sender: FDA-Public Use
  Company Number: US-ABBVIE-20K-163-3702198-00

PATIENT
  Sex: Female

DRUGS (2)
  1. HUMIRA [Suspect]
     Active Substance: ADALIMUMAB
     Dosage: CITRATE FREE/EVERY 3 OR 4 MONTHS
     Route: 058
  2. HUMIRA [Suspect]
     Active Substance: ADALIMUMAB
     Indication: CROHN^S DISEASE
     Dosage: CITRATE FREE
     Route: 058

REACTIONS (8)
  - Hip fracture [Unknown]
  - Electrolyte imbalance [Unknown]
  - Transient ischaemic attack [Unknown]
  - Abdominal pain upper [Unknown]
  - Migraine [Unknown]
  - Seizure [Unknown]
  - Transfusion [Unknown]
  - Dehydration [Unknown]

NARRATIVE: CASE EVENT DATE: 2021
